FAERS Safety Report 12589588 (Version 2)
Quarter: 2016Q4

REPORT INFORMATION
  Report Type: Spontaneous
  Country: GH (occurrence: GH)
  Receive Date: 20160725
  Receipt Date: 20161129
  Transmission Date: 20170207
  Serious: Yes (Death)
  Sender: FDA-Public Use
  Company Number: GH-ASTRAZENECA-2016SE77940

PATIENT
  Age: 3 Year
  Sex: Female

DRUGS (2)
  1. AMIKACIN [Concomitant]
     Active Substance: AMIKACIN
     Indication: SEPSIS
  2. MERONEM [Suspect]
     Active Substance: MEROPENEM
     Indication: SEPSIS
     Route: 042

REACTIONS (1)
  - Pathogen resistance [Fatal]
